FAERS Safety Report 21561125 (Version 2)
Quarter: 2023Q1

REPORT INFORMATION
  Report Type: Spontaneous
  Country: JP (occurrence: JP)
  Receive Date: 20221107
  Receipt Date: 20230117
  Transmission Date: 20230417
  Serious: Yes (Hospitalization)
  Sender: FDA-Public Use
  Company Number: JP-DSJP-DSJ-2022-139461AA

PATIENT
  Age: 93 Year
  Sex: Male

DRUGS (1)
  1. EDOXABAN TOSYLATE [Suspect]
     Active Substance: EDOXABAN TOSYLATE
     Indication: Atrial fibrillation
     Dosage: 15MG/DAY
     Route: 065
     Dates: start: 2022

REACTIONS (1)
  - Blood disorder [Recovering/Resolving]
